FAERS Safety Report 9775198 (Version 1)
Quarter: 2013Q4

REPORT INFORMATION
  Report Type: Spontaneous
  Country: US (occurrence: US)
  Receive Date: 20131220
  Receipt Date: 20131220
  Transmission Date: 20140711
  Serious: Yes (Other)
  Sender: FDA-Public Use
  Company Number: US-SA-2013SA132436

PATIENT
  Sex: 0

DRUGS (3)
  1. ELOXATIN [Suspect]
     Route: 065
  2. FOLINIC ACID [Suspect]
     Route: 065
  3. 5-FU [Suspect]
     Route: 065

REACTIONS (1)
  - Blindness transient [Unknown]
